FAERS Safety Report 4515490-3 (Version None)
Quarter: 2004Q4

REPORT INFORMATION
  Report Type: 
  Country: None (occurrence: None)
  Receive Date: 20041126
  Receipt Date: 20041119
  Transmission Date: 20050328
  Serious: Yes (Other)
  Sender: FDA-Public Use
  Company Number: US-JNJFOC-20041105236

PATIENT
  Age: 23 Year
  Sex: Female

DRUGS (2)
  1. TYLENOL (CAPLET) [Suspect]
     Indication: EAR PAIN
     Dosage: 1000 MG, ORAL
     Route: 048
  2. ORTHO CYCLEN-21 [Concomitant]

REACTIONS (3)
  - DYSPHAGIA [None]
  - THROAT IRRITATION [None]
  - THROAT TIGHTNESS [None]
